FAERS Safety Report 6183324-X (Version None)
Quarter: 2009Q2

REPORT INFORMATION
  Report Type: 
  Country: None (occurrence: None)
  Receive Date: 20090506
  Receipt Date: 20090421
  Transmission Date: 20091009
  Serious: Yes (Life-Threatening, Hospitalization)
  Sender: FDA-Public Use
  Company Number: 2009S1007077

PATIENT
  Age: 44 Year
  Sex: Female

DRUGS (10)
  1. SOTALOL HCL [Suspect]
     Indication: SUPRAVENTRICULAR TACHYCARDIA
     Dosage: 160 MG
  2. ALFACALCIDOL (CON.) [Concomitant]
  3. ASPIRIN (CON.) [Concomitant]
  4. DOMPERIDONE (CON.) [Concomitant]
  5. DOXAZOSIN (CON.) [Concomitant]
  6. FRUSEMIDE (CON.) [Concomitant]
  7. NITROFURANTOIN (CON.) [Concomitant]
  8. RABEPRAZOLE (CON.) [Concomitant]
  9. SIMVASTATIN (CON.) [Concomitant]
  10. SODIUM BICARBONATE (CON.) [Concomitant]

REACTIONS (8)
  - ACCIDENTAL OVERDOSE [None]
  - ARRHYTHMIA [None]
  - BLOOD POTASSIUM DECREASED [None]
  - DRUG TOXICITY [None]
  - ELECTROCARDIOGRAM QT PROLONGED [None]
  - TRANSPLANT REJECTION [None]
  - VENTRICULAR FIBRILLATION [None]
  - VENTRICULAR TACHYCARDIA [None]
